FAERS Safety Report 4851934-5 (Version None)
Quarter: 2005Q4

REPORT INFORMATION
  Report Type: 
  Country: None (occurrence: None)
  Receive Date: 20051209
  Receipt Date: 20051129
  Transmission Date: 20060501
  Serious: Yes (Other)
  Sender: FDA-Public Use
  Company Number: 2005163019

PATIENT
  Sex: Female

DRUGS (1)
  1. PHENYTOIN SODIUM [Suspect]
     Indication: EPILEPSY
     Dosage: (100 MG, ORAL)
     Route: 048
     Dates: end: 20051121

REACTIONS (3)
  - ECONOMIC PROBLEM [None]
  - EPILEPSY [None]
  - TREATMENT NONCOMPLIANCE [None]
